FAERS Safety Report 6931860-8 (Version None)
Quarter: 2010Q3

REPORT INFORMATION
  Report Type: 
  Country: None (occurrence: None)
  Receive Date: 20100819
  Receipt Date: 20100810
  Transmission Date: 20110219
  Serious: Yes (Death, Hospitalization)
  Sender: FDA-Public Use
  Company Number: TH-PFIZER INC-2010090046

PATIENT
  Age: 58 Year
  Sex: Male
  Weight: 50.7 kg

DRUGS (4)
  1. SUTENT [Suspect]
     Indication: BILE DUCT CANCER
     Dosage: 37.5 MG, 1X/DAY
     Dates: start: 20100611, end: 20100715
  2. FENTANYL [Concomitant]
     Indication: PAIN
     Dosage: UNK
     Route: 062
  3. AMITRIPTYLINE [Concomitant]
     Indication: PAIN
     Route: 048
  4. SENOKOT [Concomitant]
     Indication: LAXATIVE SUPPORTIVE CARE
     Dosage: UNK
     Route: 048

REACTIONS (2)
  - PNEUMOTHORAX [None]
  - PULMONARY HAEMORRHAGE [None]
